FAERS Safety Report 17957859 (Version 3)
Quarter: 2020Q3

REPORT INFORMATION
  Report Type: Report from Study
  Country: US (occurrence: US)
  Receive Date: 20200629
  Receipt Date: 20200722
  Transmission Date: 20201103
  Serious: Yes (Other)
  Sender: FDA-Public Use
  Company Number: US-SA-2020SA161515

PATIENT

DRUGS (3)
  1. DUPILUMAB [Suspect]
     Active Substance: DUPILUMAB
     Dosage: 150 MG, 1X
     Route: 058
     Dates: start: 20200623, end: 20200623
  2. DUPILUMAB [Suspect]
     Active Substance: DUPILUMAB
     Indication: ASTHMA
     Dosage: 600 MG, 1X
     Route: 058
     Dates: start: 20200602, end: 20200602
  3. DUPILUMAB [Suspect]
     Active Substance: DUPILUMAB
     Dosage: 300 MG, QOW
     Route: 058
     Dates: start: 202006, end: 202007

REACTIONS (17)
  - Vertigo [Unknown]
  - Dizziness [Unknown]
  - Chest discomfort [Recovered/Resolved]
  - Oral herpes [Unknown]
  - Pain [Unknown]
  - Arthralgia [Recovered/Resolved]
  - SARS-CoV-2 test positive [Unknown]
  - Malaise [Unknown]
  - Eye pain [Unknown]
  - Injection site reaction [Recovered/Resolved]
  - Product use issue [Unknown]
  - Myalgia [Unknown]
  - Intraocular pressure test abnormal [Unknown]
  - Headache [Unknown]
  - Pyrexia [Unknown]
  - Cough [Unknown]
  - COVID-19 [Unknown]

NARRATIVE: CASE EVENT DATE: 2020
